FAERS Safety Report 20144947 (Version 1)
Quarter: 2021Q4

REPORT INFORMATION
  Report Type: Spontaneous
  Country: CN (occurrence: CN)
  Receive Date: 20211203
  Receipt Date: 20211203
  Transmission Date: 20220303
  Serious: Yes (Death, Life-Threatening, Hospitalization, Other)
  Sender: FDA-Public Use
  Company Number: CN-ALVOGEN-2021-ALVOGEN-117850

PATIENT
  Age: 68 Year
  Sex: Female

DRUGS (1)
  1. DEXAMETHASONE [Suspect]
     Active Substance: DEXAMETHASONE
     Indication: Dermatitis

REACTIONS (5)
  - Congestive cardiomyopathy [Recovering/Resolving]
  - Tertiary adrenal insufficiency [Recovering/Resolving]
  - Cardiac failure [Recovering/Resolving]
  - Shock [Recovered/Resolved]
  - Sudden cardiac death [Fatal]

NARRATIVE: CASE EVENT DATE: 20200501
